FAERS Safety Report 7480959-9 (Version None)
Quarter: 2011Q2

REPORT INFORMATION
  Report Type: 
  Country: None (occurrence: None)
  Receive Date: 20110506
  Receipt Date: 20110430
  Transmission Date: 20111010
  Serious: Yes (Death, Hospitalization)
  Sender: FDA-Public Use
  Company Number: 2011SP019476

PATIENT
  Age: 55 Year
  Sex: Male
  Weight: 58.96 kg

DRUGS (36)
  1. INTRON A [Suspect]
     Indication: HEPATITIS C
     Dates: start: 20110110, end: 20110314
  2. HEPARIN LOCK-FLUSH [Concomitant]
  3. CORDARONE [Concomitant]
  4. PROTONIX [Concomitant]
  5. NORMAL SALINE [Concomitant]
  6. VERSED [Concomitant]
  7. NORMAL SALINE [Concomitant]
  8. ALBUTEROL SULFATE AUTOHALER [Concomitant]
  9. PRILOSEC [Concomitant]
  10. REBETOL [Suspect]
     Indication: HEPATITIS C
     Dosage: 1000 MG;QD
     Dates: start: 20110110, end: 20110404
  11. CATAPRES-TTS-2 [Concomitant]
  12. DORIBAX [Concomitant]
  13. HEPARIN SODIUM [Concomitant]
  14. NORMAL SALINE [Concomitant]
  15. ALDACTONE [Concomitant]
  16. XANAX [Concomitant]
  17. DEXTROSE [Concomitant]
  18. GLUCAGON [Concomitant]
  19. TUSSIONEX [Concomitant]
  20. REGLAN [Concomitant]
  21. THEOPHYLLINE [Concomitant]
  22. DIFLUCAN [Concomitant]
  23. SOLU-MEDROL [Concomitant]
  24. ATROPINE SULFATE [Concomitant]
  25. COMBIVENT [Concomitant]
  26. GLUCOSE [Concomitant]
  27. NORVASC [Concomitant]
  28. NITROGLYCERIN [Concomitant]
  29. NORMAL SALINE [Concomitant]
  30. COMBIVENT [Concomitant]
  31. FENTANYL/NS [Concomitant]
  32. ALDACTONE [Concomitant]
  33. ACETAMINOPHEN [Concomitant]
  34. LANTUS [Concomitant]
  35. HUMULIN R/NOVOLIN R [Concomitant]
  36. ULTRAM [Concomitant]

REACTIONS (11)
  - DEHYDRATION [None]
  - PNEUMONIA [None]
  - NAUSEA [None]
  - INTERSTITIAL LUNG DISEASE [None]
  - DIZZINESS [None]
  - PULMONARY OEDEMA [None]
  - VOMITING [None]
  - BALANCE DISORDER [None]
  - CONSTIPATION [None]
  - RESPIRATORY DISTRESS [None]
  - BLOOD GLUCOSE INCREASED [None]
